FAERS Safety Report 17152290 (Version 1)
Quarter: 2019Q4

REPORT INFORMATION
  Report Type: Spontaneous
  Country: PL (occurrence: PL)
  Receive Date: 20191213
  Receipt Date: 20191213
  Transmission Date: 20200122
  Serious: Yes (Hospitalization)
  Sender: FDA-Public Use
  Company Number: PL-MYLANLABS-2019M1122434

PATIENT
  Age: 56 Year
  Sex: Female

DRUGS (6)
  1. SERTRALINE [Interacting]
     Active Substance: SERTRALINE HYDROCHLORIDE
     Indication: DEPRESSION
     Dosage: 100 MILLIGRAM, QD
  2. OMEPRAZOLE. [Interacting]
     Active Substance: OMEPRAZOLE
     Indication: SPINAL PAIN
     Dosage: 40 MILLIGRAM, QD
  3. CELECOXIB. [Interacting]
     Active Substance: CELECOXIB
     Indication: SPINAL PAIN
     Dosage: 400 MILLIGRAM, QD
  4. INDAPAMIDE. [Suspect]
     Active Substance: INDAPAMIDE
     Indication: HYPERTENSION
     Dosage: 1.5 MILLIGRAM, QD
  5. HYDROXYZINE HYDROCHLORIDE. [Interacting]
     Active Substance: HYDROXYZINE HYDROCHLORIDE
     Indication: INSOMNIA
     Dosage: 25 MILLIGRAM, QD
  6. ENALAPRIL MALEATE. [Interacting]
     Active Substance: ENALAPRIL MALEATE
     Indication: HYPERTENSION
     Dosage: 20 MILLIGRAM, QD

REACTIONS (2)
  - Drug interaction [Recovered/Resolved]
  - Burning mouth syndrome [Recovered/Resolved]
